FAERS Safety Report 14126369 (Version 1)
Quarter: 2017Q4

REPORT INFORMATION
  Report Type: Spontaneous
  Country: US (occurrence: US)
  Receive Date: 20171025
  Receipt Date: 20171025
  Transmission Date: 20180321
  Serious: No
  Sender: FDA-Public Use
  Company Number: US-NEUROCRINE BIOSCIENCES INC.-2017NBI01064

PATIENT
  Age: 54 Year
  Sex: Female

DRUGS (4)
  1. INGREZZA [Suspect]
     Active Substance: VALBENAZINE
     Route: 048
  2. INGREZZA [Suspect]
     Active Substance: VALBENAZINE
     Route: 048
  3. INGREZZA [Suspect]
     Active Substance: VALBENAZINE
     Indication: PRODUCT USED FOR UNKNOWN INDICATION
     Route: 048
  4. INGREZZA [Suspect]
     Active Substance: VALBENAZINE
     Route: 048

REACTIONS (6)
  - Dizziness [Unknown]
  - Somnolence [Unknown]
  - Gait disturbance [Unknown]
  - Dysarthria [Unknown]
  - Drooling [Unknown]
  - Urinary retention [Unknown]
